FAERS Safety Report 9345386 (Version 1)
Quarter: 2013Q2

REPORT INFORMATION
  Report Type: Report from Study
  Country: GB (occurrence: GB)
  Receive Date: 20130613
  Receipt Date: 20130613
  Transmission Date: 20140414
  Serious: Yes (Hospitalization)
  Sender: FDA-Public Use
  Company Number: GB-ROCHE-1235636

PATIENT
  Sex: Female
  Weight: 70 kg

DRUGS (1)
  1. RITUXIMAB [Suspect]
     Indication: RHEUMATOID ARTHRITIS
     Dosage: DATE OF LAST DOSE PRIOR TO SERIOUS ADVERSE EVENT 02/MAY/2012.
     Route: 065
     Dates: start: 20110215

REACTIONS (2)
  - Vomiting [Unknown]
  - Malaise [Unknown]
